FAERS Safety Report 4693571-1 (Version None)
Quarter: 2005Q2

REPORT INFORMATION
  Report Type: 
  Country: None (occurrence: None)
  Receive Date: 20050617
  Receipt Date: 20050606
  Transmission Date: 20051028
  Serious: Yes (Life-Threatening)
  Sender: FDA-Public Use
  Company Number: GB-ROCHE-406854

PATIENT
  Age: 58 Year
  Sex: Male
  Weight: 53.1 kg

DRUGS (11)
  1. ORLISTAT [Suspect]
     Indication: DRUG USE FOR UNKNOWN INDICATION
     Route: 048
     Dates: start: 20020730, end: 20050225
  2. DIHYDROCODEINE [Concomitant]
     Dosage: DOSE REPORTED AS ^TWO TO BE TAKEN THREE TIMES A DAY AS REQUIRED^.
     Dates: start: 19970612
  3. SILDENAFIL CITRATE [Concomitant]
     Dosage: DOSE: AS REQUIRED.
     Dates: start: 20001207
  4. LOPERAMIDE HYDROCHLORIDE [Concomitant]
     Dosage: DOSE REPORTED AS ^ONE TO BE TAKEN TWICE A DAY AS REQUIRED^
     Dates: start: 20010521
  5. METFORMIN HCL [Concomitant]
     Dates: start: 20010801
  6. NAPROXEN [Concomitant]
     Dates: start: 20011123
  7. OILATUM SOAP [Concomitant]
     Dosage: DRUG REPORTED AS OILATUM (PARAFFINS, ARACHIS OIL). DOSE: AS REQUIRED.
  8. POLYTAR EMOLLIENT [Concomitant]
     Dates: start: 19970403
  9. CO-CODAMOL [Concomitant]
     Dosage: DOSE: TWO AS REQUIRED.
     Dates: start: 20040705
  10. FERROUS SULFATE TAB [Concomitant]
     Dates: start: 20050217
  11. CO-AMOXICLAV [Concomitant]
     Dates: end: 20050311

REACTIONS (1)
  - PANCYTOPENIA [None]
